FAERS Safety Report 5514962-2 (Version None)
Quarter: 2007Q4

REPORT INFORMATION
  Report Type: 
  Country: None (occurrence: None)
  Receive Date: 20071113
  Receipt Date: 20061020
  Transmission Date: 20080405
  Serious: No
  Sender: FDA-Public Use
  Company Number: A0624397A

PATIENT
  Age: 68 Year
  Sex: Female

DRUGS (14)
  1. COREG [Suspect]
     Dosage: 3.125MG TWICE PER DAY
     Route: 048
     Dates: start: 20060730
  2. PLAVIX [Suspect]
     Indication: STENT PLACEMENT
     Dosage: 75MG PER DAY
     Dates: start: 20060701
  3. PRINIVIL [Suspect]
     Dosage: 2.5MG PER DAY
  4. CARTIA XT [Concomitant]
  5. GLYBURIDE [Concomitant]
  6. SYNTHROID [Concomitant]
  7. LASIX [Concomitant]
  8. ASPIRIN [Concomitant]
  9. POTASSIUM CHLORIDE [Concomitant]
  10. FISH OIL [Concomitant]
  11. MULTI-VITAMIN [Concomitant]
  12. STOOL SOFTENER [Concomitant]
  13. ZELNORM [Concomitant]
  14. PREVACID [Concomitant]

REACTIONS (12)
  - AMNESIA [None]
  - ANXIETY [None]
  - ASTHENIA [None]
  - BALANCE DISORDER [None]
  - BLOOD GLUCOSE INCREASED [None]
  - CONFUSIONAL STATE [None]
  - DEPRESSION [None]
  - DIZZINESS [None]
  - DYSPNOEA [None]
  - HYPOTENSION [None]
  - PERIPHERAL COLDNESS [None]
  - SOMNOLENCE [None]
